FAERS Safety Report 21400712 (Version 4)
Quarter: 2023Q2

REPORT INFORMATION
  Report Type: Report from Study
  Country: US (occurrence: US)
  Receive Date: 20221003
  Receipt Date: 20230421
  Transmission Date: 20230722
  Serious: Yes (Hospitalization, Other)
  Sender: FDA-Public Use
  Company Number: US-ABBVIE-4130599

PATIENT
  Sex: Male

DRUGS (4)
  1. HUMIRA [Suspect]
     Active Substance: ADALIMUMAB
     Indication: Psoriasis
     Dosage: CITRATE FREE
     Route: 058
     Dates: start: 20220425
  2. HUMIRA [Suspect]
     Active Substance: ADALIMUMAB
     Dosage: CITRATE FREE
     Route: 058
  3. Covid-19 Vaccine [Concomitant]
     Indication: COVID-19 immunisation
     Dosage: 1 IN ONCE
     Route: 030
  4. NORCO [Concomitant]
     Active Substance: ACETAMINOPHEN\HYDROCODONE BITARTRATE
     Indication: Product used for unknown indication

REACTIONS (10)
  - Meniscus injury [Unknown]
  - Eye infection bacterial [Recovering/Resolving]
  - Psoriasis [Unknown]
  - Back disorder [Unknown]
  - Eye swelling [Unknown]
  - Conjunctivitis [Unknown]
  - Pain [Unknown]
  - Gait inability [Unknown]
  - Blood cholesterol abnormal [Unknown]
  - Blood pressure abnormal [Unknown]
